FAERS Safety Report 23707736 (Version 2)
Quarter: 2024Q3

REPORT INFORMATION
  Report Type: Spontaneous
  Country: US (occurrence: US)
  Receive Date: 20240404
  Receipt Date: 20240801
  Transmission Date: 20241017
  Serious: No
  Sender: SANOFI AVENTIS
  Company Number: US-SA-SAC20240401000484

PATIENT
  Age: 33 Year
  Sex: Female

DRUGS (1)
  1. DUPIXENT [Suspect]
     Active Substance: DUPILUMAB
     Indication: Dermatitis atopic
     Dosage: 300 MG, QOW
     Route: 058
     Dates: start: 202401

REACTIONS (7)
  - Injection site mass [Unknown]
  - Incorrect dose administered [Unknown]
  - Injection site pain [Unknown]
  - Product preparation error [Unknown]
  - Dehydration [Unknown]
  - Blood potassium decreased [Unknown]
  - Eating disorder [Unknown]

NARRATIVE: CASE EVENT DATE: 20240101
